FAERS Safety Report 9263786 (Version 3)
Quarter: 2013Q3

REPORT INFORMATION
  Report Type: Spontaneous
  Country: CA (occurrence: CA)
  Receive Date: 20130430
  Receipt Date: 20130917
  Transmission Date: 20140515
  Serious: Yes (Other)
  Sender: FDA-Public Use
  Company Number: CA-PFIZER INC-2013131155

PATIENT
  Age: 55 Year
  Sex: Female
  Weight: 127 kg

DRUGS (9)
  1. TECTA [Suspect]
     Indication: GASTRITIS EROSIVE
     Dosage: 40 MG, 1X/DAY
     Route: 048
     Dates: start: 20121016, end: 20121022
  2. ADVAIR [Concomitant]
     Dosage: UNK
  3. CLONAZEPAM [Concomitant]
     Dosage: UNK
  4. CRESTOR [Concomitant]
     Dosage: UNK
  5. ELTROXIN [Concomitant]
     Dosage: UNK
  6. MAVIK [Concomitant]
     Dosage: UNK
  7. RANITIDINE [Concomitant]
     Dosage: UNK
     Dates: start: 20121016
  8. TRIAZIDE [Concomitant]
     Dosage: UNK
  9. VENTOLIN [Concomitant]
     Dosage: UNK

REACTIONS (14)
  - Blister [Recovering/Resolving]
  - Cough [Recovering/Resolving]
  - Dysphonia [Recovering/Resolving]
  - Eczema [Recovering/Resolving]
  - Erythema nodosum [Recovering/Resolving]
  - Feeling cold [Recovering/Resolving]
  - Granuloma [Recovering/Resolving]
  - Joint swelling [Recovering/Resolving]
  - Oropharyngeal pain [Recovering/Resolving]
  - Oedema peripheral [Recovering/Resolving]
  - Pruritus [Recovering/Resolving]
  - Fatigue [Recovering/Resolving]
  - Weight decreased [Recovering/Resolving]
  - Arthralgia [Recovering/Resolving]
